FAERS Safety Report 15271861 (Version 2)
Quarter: 2018Q3

REPORT INFORMATION
  Report Type: Report from Study
  Country: BR (occurrence: BR)
  Receive Date: 20180813
  Receipt Date: 20180822
  Transmission Date: 20181010
  Serious: Yes (Hospitalization, Other)
  Sender: FDA-Public Use
  Company Number: PHHY2018BR071627

PATIENT
  Sex: Male
  Weight: 90 kg

DRUGS (5)
  1. COSENTYX [Suspect]
     Active Substance: SECUKINUMAB
     Indication: ANKYLOSING SPONDYLITIS
  2. COSENTYX [Suspect]
     Active Substance: SECUKINUMAB
     Indication: PSORIASIS
  3. OMEPRAZOL [Concomitant]
     Active Substance: OMEPRAZOLE
     Indication: OESOPHAGITIS
     Dosage: 1 DF, QD (ONLY IF NECESSARY)
     Route: 048
     Dates: start: 2000
  4. COSENTYX [Suspect]
     Active Substance: SECUKINUMAB
     Indication: PSORIATIC ARTHROPATHY
     Dosage: 300 MG, QW (2 PENS A WEEK DURIN 5 WEEKS AND BEING USING 2 PENS A MONTH)
     Route: 058
  5. TANDRILAX [Concomitant]
     Active Substance: ACETAMINOPHEN\CAFFEINE\CARISOPRODOL\DICLOFENAC SODIUM
     Indication: PAIN
     Dosage: 1 DF, QD (IN THE MORNING)
     Route: 048
     Dates: end: 20180813

REACTIONS (8)
  - Decreased immune responsiveness [Unknown]
  - Musculoskeletal stiffness [Not Recovered/Not Resolved]
  - Pain [Not Recovered/Not Resolved]
  - Visual impairment [Not Recovered/Not Resolved]
  - Spinal disorder [Not Recovered/Not Resolved]
  - Psoriatic arthropathy [Recovering/Resolving]
  - Inappropriate schedule of drug administration [Unknown]
  - Uveitis [Unknown]
